FAERS Safety Report 8465667-X (Version None)
Quarter: 2012Q2

REPORT INFORMATION
  Report Type: 
  Country: None (occurrence: None)
  Receive Date: 20120619
  Receipt Date: 20120604
  Transmission Date: 20120825
  Serious: Yes (Hospitalization, Other)
  Sender: FDA-Public Use
  Company Number: 2012P1013013

PATIENT
  Age: 80 Year
  Sex: Male

DRUGS (7)
  1. WARFARIN SODIUM [Suspect]
     Indication: ATRIAL FIBRILLATION
     Dosage: 7.5 MG;QD;PO
     Route: 048
     Dates: start: 20120101, end: 20120321
  2. METOPROLOL [Concomitant]
  3. WARFARIN SODIUM [Suspect]
     Indication: ATRIAL FIBRILLATION
     Dosage: 2.5 MG;BIW;PO 2.5 MG;QD;PO
     Route: 048
     Dates: start: 20120307, end: 20120321
  4. WARFARIN SODIUM [Suspect]
     Indication: ATRIAL FIBRILLATION
     Dosage: 2.5 MG;BIW;PO 2.5 MG;QD;PO
     Route: 048
     Dates: end: 20120307
  5. LOSARTAN POTASSIUM [Concomitant]
  6. FISH OIL [Concomitant]
  7. ATORVASTATIN [Concomitant]

REACTIONS (9)
  - INTERNATIONAL NORMALISED RATIO DECREASED [None]
  - HYPOTENSION [None]
  - ATRIAL FIBRILLATION [None]
  - PRODUCT SUBSTITUTION ISSUE [None]
  - PRODUCT QUALITY ISSUE [None]
  - CEREBROVASCULAR ACCIDENT [None]
  - FATIGUE [None]
  - DECREASED APPETITE [None]
  - MALAISE [None]
